FAERS Safety Report 5421667-5 (Version None)
Quarter: 2007Q3

REPORT INFORMATION
  Report Type: 
  Country: None (occurrence: None)
  Receive Date: 20070817
  Receipt Date: 20070801
  Transmission Date: 20080115
  Serious: Yes (Congenital Anomaly)
  Sender: FDA-Public Use
  Company Number: 6036469

PATIENT
  Age: 35 Year
  Sex: Female

DRUGS (2)
  1. METFORMIN HCL [Suspect]
     Indication: POLYCYSTIC OVARIES
     Dosage: 2000 MG (2000 MG, 1 D) ORAL
     Route: 048
  2. CLOMIPHENE CITRATE [Suspect]
     Indication: POLYCYSTIC OVARIES
     Dosage: (50 MG, 1 D) ORAL
     Route: 048

REACTIONS (4)
  - DEATH OF RELATIVE [None]
  - DRUG EXPOSURE DURING PREGNANCY [None]
  - MULTIPLE PREGNANCY [None]
  - PREMATURE LABOUR [None]
